FAERS Safety Report 23155573 (Version 1)
Quarter: 2023Q4

REPORT INFORMATION
  Report Type: Spontaneous
  Country: US (occurrence: US)
  Receive Date: 20231107
  Receipt Date: 20231107
  Transmission Date: 20240110
  Serious: No
  Sender: FDA-Public Use
  Company Number: US-SA-SAC20231030001211

PATIENT
  Sex: Female

DRUGS (1)
  1. DUPIXENT [Suspect]
     Active Substance: DUPILUMAB
     Indication: Asthma
     Dosage: : 300MG FREQUENCY: EVERY OTHER WEEK
     Route: 058
     Dates: start: 20200708

REACTIONS (2)
  - Pharyngitis streptococcal [Unknown]
  - Influenza [Unknown]
